FAERS Safety Report 25087577 (Version 1)
Quarter: 2025Q1

REPORT INFORMATION
  Report Type: Report from Study
  Country: PK (occurrence: PK)
  Receive Date: 20250318
  Receipt Date: 20250318
  Transmission Date: 20250409
  Serious: Yes (Death)
  Sender: ROCHE
  Company Number: PK-ROCHE-10000232889

PATIENT
  Age: 70 Year
  Sex: Female

DRUGS (1)
  1. AVASTIN [Suspect]
     Active Substance: BEVACIZUMAB
     Indication: Colorectal cancer metastatic
     Route: 042
     Dates: start: 20241003, end: 20241221

REACTIONS (2)
  - Disease progression [Fatal]
  - Condition aggravated [Unknown]

NARRATIVE: CASE EVENT DATE: 20250210
